FAERS Safety Report 7600072-7 (Version None)
Quarter: 2011Q3

REPORT INFORMATION
  Report Type: 
  Country: None (occurrence: None)
  Receive Date: 20110711
  Receipt Date: 20110629
  Transmission Date: 20111222
  Serious: Yes (Life-Threatening, Hospitalization)
  Sender: FDA-Public Use
  Company Number: FR-JNJFOC-20110700573

PATIENT
  Age: 22 Year
  Sex: Female
  Weight: 65 kg

DRUGS (2)
  1. KETOCONAZOLE [Concomitant]
     Indication: VAGINAL INFECTION
     Route: 065
  2. TRAMADOL HCL [Suspect]
     Indication: PRODUCT USED FOR UNKNOWN INDICATION
     Dosage: 90X50 MG
     Route: 048

REACTIONS (11)
  - HYPOTHERMIA [None]
  - HYPOGLYCAEMIA [None]
  - LOSS OF CONSCIOUSNESS [None]
  - RENAL FAILURE [None]
  - CARDIAC ARREST [None]
  - SHOCK [None]
  - LACTIC ACIDOSIS [None]
  - MYDRIASIS [None]
  - CARDIAC FAILURE CONGESTIVE [None]
  - HEPATIC FAILURE [None]
  - INTENTIONAL OVERDOSE [None]
